FAERS Safety Report 8643853 (Version 3)
Quarter: 2013Q4

REPORT INFORMATION
  Report Type: Spontaneous
  Country: IL (occurrence: IL)
  Receive Date: 20120629
  Receipt Date: 20131031
  Transmission Date: 20140711
  Serious: Yes (Hospitalization)
  Sender: FDA-Public Use
  Company Number: IL-009507513-1206USA04440

PATIENT
  Age: 60 Year
  Sex: Female

DRUGS (1)
  1. JANUET [Suspect]
     Dosage: UNK MG, UNK
     Route: 048
     Dates: start: 20120426

REACTIONS (4)
  - Oedema [Not Recovered/Not Resolved]
  - Cough [Not Recovered/Not Resolved]
  - Malaise [Unknown]
  - Nausea [Unknown]
